FAERS Safety Report 12877619 (Version 2)
Quarter: 2016Q4

REPORT INFORMATION
  Report Type: Report from Study
  Country: GB (occurrence: GB)
  Receive Date: 20161024
  Receipt Date: 20161115
  Transmission Date: 20170207
  Serious: Yes (Life-Threatening, Hospitalization)
  Sender: FDA-Public Use
  Company Number: PHFR2016GB008428

PATIENT
  Sex: Male

DRUGS (2)
  1. COLOMYCIN [Concomitant]
     Active Substance: COLISTIN
     Indication: PRODUCT USED FOR UNKNOWN INDICATION
     Route: 065
  2. TOBI PODHALER [Suspect]
     Active Substance: TOBRAMYCIN
     Indication: CYSTIC FIBROSIS
     Dosage: 112 MG, BID (ALTERNATE MONTH)
     Route: 065
     Dates: start: 201303

REACTIONS (1)
  - Apparent death [Recovered/Resolved]
